FAERS Safety Report 15369269 (Version 1)
Quarter: 2018Q3

REPORT INFORMATION
  Report Type: Spontaneous
  Country: US (occurrence: US)
  Receive Date: 20180911
  Receipt Date: 20180911
  Transmission Date: 20181010
  Serious: Yes (Hospitalization, Other)
  Sender: FDA-Public Use
  Company Number: US-APOTEX-2018AP020389

PATIENT
  Age: 44 Year
  Sex: Male

DRUGS (3)
  1. AMIODARONE [Suspect]
     Active Substance: AMIODARONE
     Indication: ATRIAL FIBRILLATION
     Dosage: UNK
     Route: 048
  2. AMIODARONE                         /00133102/ [Suspect]
     Active Substance: AMIODARONE
     Indication: ATRIAL FIBRILLATION
     Dosage: BOLUS
     Route: 042
  3. AMIODARONE                         /00133102/ [Suspect]
     Active Substance: AMIODARONE
     Dosage: DRIP
     Route: 042

REACTIONS (3)
  - Hypomagnesaemia [Unknown]
  - Torsade de pointes [Recovered/Resolved]
  - Bradycardia [Unknown]
